FAERS Safety Report 9540388 (Version 1)
Quarter: 2013Q3

REPORT INFORMATION
  Report Type: Spontaneous
  Country: AU (occurrence: AU)
  Receive Date: 20130920
  Receipt Date: 20130920
  Transmission Date: 20140515
  Serious: Yes (Death)
  Sender: FDA-Public Use
  Company Number: AU-B.I. PHARMACEUTICALS,INC./RIDGEFIELD-2013-BI-29566AU

PATIENT
  Age: 94 Year
  Sex: Female

DRUGS (4)
  1. SPIRIVA [Suspect]
  2. ANTIHYPERTENSIVES [Concomitant]
  3. DIURETICS [Concomitant]
  4. MEDICATIONS FOR COPD [Concomitant]

REACTIONS (1)
  - Cardiac failure congestive [Fatal]
